FAERS Safety Report 8614193-3 (Version None)
Quarter: 2012Q3

REPORT INFORMATION
  Report Type: 
  Country: None (occurrence: None)
  Receive Date: 20120823
  Receipt Date: 20120816
  Transmission Date: 20120928
  Serious: Yes (Other)
  Sender: FDA-Public Use
  Company Number: US-JNJFOC-20120810252

PATIENT
  Age: 61 Year
  Sex: Male
  Weight: 44.45 kg

DRUGS (3)
  1. MINOXIDIL [Suspect]
     Indication: HAIR GROWTH ABNORMAL
     Dosage: RECOMMENDED AMOUNT, 1 OR 2 TIMES A DAY
     Route: 061
     Dates: start: 20120501
  2. LIPITOR [Concomitant]
     Indication: BLOOD CHOLESTEROL
     Route: 065
  3. MINOXIDIL [Suspect]
     Route: 061

REACTIONS (3)
  - UNDERDOSE [None]
  - VITREOUS FLOATERS [None]
  - WRONG TECHNIQUE IN DRUG USAGE PROCESS [None]
